FAERS Safety Report 12683189 (Version 2)
Quarter: 2016Q4

REPORT INFORMATION
  Report Type: Report from Study
  Country: HN (occurrence: HN)
  Receive Date: 20160825
  Receipt Date: 20161123
  Transmission Date: 20170207
  Serious: Yes (Hospitalization)
  Sender: FDA-Public Use
  Company Number: PHHY2016HN115750

PATIENT
  Age: 101 Year
  Sex: Female

DRUGS (1)
  1. CO-DIOVAN [Suspect]
     Active Substance: HYDROCHLOROTHIAZIDE\VALSARTAN
     Indication: PRODUCT USED FOR UNKNOWN INDICATION
     Dosage: 1 DF ((HYDROCHLOROTHIAZIDE 25 MG, VALSARTAN 320 MG), UNK
     Route: 065

REACTIONS (2)
  - Road traffic accident [Unknown]
  - Abasia [Unknown]
